FAERS Safety Report 15356764 (Version 6)
Quarter: 2019Q4

REPORT INFORMATION
  Report Type: Report from Study
  Country: US (occurrence: US)
  Receive Date: 20180906
  Receipt Date: 20191030
  Transmission Date: 20200122
  Serious: Yes (Other)
  Sender: FDA-Public Use
  Company Number: US-SA-2018SA246405

PATIENT
  Age: 65 Year
  Sex: Female

DRUGS (1)
  1. SARILUMAB [Suspect]
     Active Substance: SARILUMAB
     Indication: RHEUMATOID ARTHRITIS
     Dosage: 200 MG, QOW
     Route: 058
     Dates: start: 20180801

REACTIONS (11)
  - Incorrect dose administered [Unknown]
  - Injection site bruising [Unknown]
  - Cardiovascular disorder [Unknown]
  - Device use issue [Unknown]
  - Injection site erythema [Unknown]
  - Skin discolouration [Unknown]
  - Injection site pruritus [Unknown]
  - Therapeutic response decreased [Unknown]
  - Burning sensation [Unknown]
  - Pain in extremity [Unknown]
  - Rheumatoid arthritis [Unknown]

NARRATIVE: CASE EVENT DATE: 2018
